FAERS Safety Report 17653678 (Version 1)
Quarter: 2020Q2

REPORT INFORMATION
  Report Type: Spontaneous
  Country: US (occurrence: US)
  Receive Date: 20200409
  Receipt Date: 20200409
  Transmission Date: 20200713
  Serious: Yes (Death)
  Sender: FDA-Public Use
  Company Number: US-INCYTE CORPORATION-2020IN003331

PATIENT

DRUGS (1)
  1. JAKAFI [Suspect]
     Active Substance: RUXOLITINIB
     Indication: DRUG WITHDRAWAL SYNDROME
     Dosage: UNK
     Route: 065

REACTIONS (2)
  - Platelet count decreased [Fatal]
  - Death [Fatal]
